FAERS Safety Report 23446950 (Version 2)
Quarter: 2024Q1

REPORT INFORMATION
  Report Type: Spontaneous
  Country: TW (occurrence: TW)
  Receive Date: 20240126
  Receipt Date: 20240206
  Transmission Date: 20240410
  Serious: Yes (Other)
  Sender: FDA-Public Use
  Company Number: TW-BAYER-2024A014546

PATIENT
  Age: 54 Year
  Sex: Male

DRUGS (1)
  1. ULTRAVIST [Suspect]
     Active Substance: IOPROMIDE
     Indication: Catheterisation cardiac
     Dosage: 70-80ML, ONCE
     Dates: start: 20231221, end: 20231221

REACTIONS (7)
  - Blood pressure decreased [Recovered/Resolved]
  - Heart rate decreased [Recovered/Resolved]
  - White blood cell count increased [Recovered/Resolved]
  - Neutrophil count increased [Recovered/Resolved]
  - Glomerular filtration rate decreased [Recovered/Resolved]
  - PO2 increased [Recovered/Resolved]
  - PCO2 decreased [Recovered/Resolved]

NARRATIVE: CASE EVENT DATE: 20231221
